FAERS Safety Report 17060738 (Version 2)
Quarter: 2021Q2

REPORT INFORMATION
  Report Type: Spontaneous
  Country: JP (occurrence: JP)
  Receive Date: 20191121
  Receipt Date: 20210412
  Transmission Date: 20210716
  Serious: Yes (Death)
  Sender: FDA-Public Use
  Company Number: JP-EISAI MEDICAL RESEARCH-EC-2018-041843

PATIENT
  Age: 72 Year
  Sex: Male

DRUGS (4)
  1. LENVIMA [Suspect]
     Active Substance: LENVATINIB
     Route: 048
  2. NEXAVAR [Concomitant]
     Active Substance: SORAFENIB
     Indication: PAPILLARY THYROID CANCER
     Route: 065
  3. LENVIMA [Suspect]
     Active Substance: LENVATINIB
     Indication: PAPILLARY THYROID CANCER
     Route: 048
  4. LENVIMA [Suspect]
     Active Substance: LENVATINIB
     Route: 048

REACTIONS (5)
  - Tracheal fistula [Unknown]
  - Decreased appetite [Unknown]
  - Haemoptysis [Unknown]
  - Respiratory failure [Fatal]
  - Hypertension [Unknown]
